FAERS Safety Report 21458825 (Version 1)
Quarter: 2022Q4

REPORT INFORMATION
  Report Type: Spontaneous
  Country: US (occurrence: None)
  Receive Date: 20221013
  Receipt Date: 20221013
  Transmission Date: 20230113
  Serious: Yes (Life-Threatening)
  Sender: FDA-Public Use
  Company Number: None

PATIENT
  Age: 58 Year
  Sex: Female
  Weight: 71.55 kg

DRUGS (3)
  1. PROLIA [Suspect]
     Active Substance: DENOSUMAB
     Indication: Product used for unknown indication
     Dosage: OTHER FREQUENCY : EVERY SIX MONTHS;?
     Route: 058
  2. SYNTHROID [Concomitant]
     Active Substance: LEVOTHYROXINE SODIUM
  3. armidex [Concomitant]

REACTIONS (5)
  - Neuroendocrine carcinoma [None]
  - Meningioma [None]
  - Large intestine polyp [None]
  - Skin cancer [None]
  - Urinary tract infection [None]

NARRATIVE: CASE EVENT DATE: 20190717
